FAERS Safety Report 7774379-7 (Version None)
Quarter: 2011Q3

REPORT INFORMATION
  Report Type: 
  Country: None (occurrence: None)
  Receive Date: 20110923
  Receipt Date: 20110920
  Transmission Date: 20111222
  Serious: Yes (Death, Hospitalization)
  Sender: FDA-Public Use
  Company Number: IT-BRISTOL-MYERS SQUIBB COMPANY-16080822

PATIENT
  Age: 34 Year
  Sex: Male

DRUGS (10)
  1. CONGESCOR [Concomitant]
     Dates: start: 20110509, end: 20110919
  2. ASPIRIN [Concomitant]
     Dates: start: 20110509, end: 20110919
  3. PANTOPRAZOLE SODIUM [Concomitant]
     Dates: start: 20110509, end: 20110919
  4. IPILIMUMAB [Suspect]
     Indication: MALIGNANT MELANOMA
     Dosage: IPILIMUMAB VIAL NUMBERS:341845
     Route: 042
     Dates: start: 20110907, end: 20110907
  5. FERROUS SULFATE TAB [Concomitant]
     Dates: start: 20110509, end: 20110919
  6. RAMIPRIL [Concomitant]
     Dates: start: 20110509, end: 20110919
  7. MS CONTIN [Concomitant]
     Dates: start: 20110509, end: 20110919
  8. LEVOPRAID [Concomitant]
     Dates: start: 20110509, end: 20110919
  9. LYRICA [Concomitant]
     Dates: start: 20110509, end: 20110919
  10. LEVOTHYROXINE SODIUM [Concomitant]
     Dates: start: 20110509, end: 20110919

REACTIONS (2)
  - RENAL FAILURE ACUTE [None]
  - CARDIAC ARREST [None]
